FAERS Safety Report 15723693 (Version 1)
Quarter: 2018Q4

REPORT INFORMATION
  Report Type: Spontaneous
  Country: US (occurrence: US)
  Receive Date: 20181214
  Receipt Date: 20181214
  Transmission Date: 20190205
  Serious: Yes (Hospitalization)
  Sender: FDA-Public Use
  Company Number: US-FRESENIUS KABI-FK201812602

PATIENT
  Age: 21 Year
  Sex: Male
  Weight: 79 kg

DRUGS (6)
  1. RUXOLITINIB [Suspect]
     Active Substance: RUXOLITINIB
     Indication: ACUTE LYMPHOCYTIC LEUKAEMIA
     Dosage: REGIMEN 1: 95 MG AM AND PM DOSE DAYS 1 TO 15
     Route: 048
     Dates: start: 20181010, end: 20181019
  2. VINCRISTINE [Suspect]
     Active Substance: VINCRISTINE
     Indication: ACUTE LYMPHOCYTIC LEUKAEMIA
     Dosage: ON DAYS 15 AND 22
     Route: 042
     Dates: start: 20181019
  3. PEGASPARGASE [Suspect]
     Active Substance: PEGASPARGASE
     Indication: ACUTE LYMPHOCYTIC LEUKAEMIA
     Dosage: 4850 UNITS ON DAY 15
     Route: 042
     Dates: start: 20181019
  4. RUXOLITINIB [Suspect]
     Active Substance: RUXOLITINIB
     Dosage: REGIMEN 2: 95 MG AM AND PM DOSE DAYS 1 TO 15
     Route: 048
     Dates: start: 20181102
  5. METHOTREXATE (MANUFACTURER UNKNOWN) [Suspect]
     Active Substance: METHOTREXATE
     Indication: ACUTE LYMPHOCYTIC LEUKAEMIA
     Dosage: ON DAYS 15 AND 22
     Route: 037
     Dates: start: 20181019
  6. ATIVAN [Concomitant]
     Active Substance: LORAZEPAM
     Indication: PRODUCT USED FOR UNKNOWN INDICATION
     Route: 065

REACTIONS (2)
  - Febrile neutropenia [Unknown]
  - Headache [Unknown]

NARRATIVE: CASE EVENT DATE: 20181029
